FAERS Safety Report 9839382 (Version 2)
Quarter: 2014Q1

REPORT INFORMATION
  Report Type: Report from Study
  Country: US (occurrence: US)
  Receive Date: 20140123
  Receipt Date: 20140128
  Transmission Date: 20141002
  Serious: Yes (Death)
  Sender: FDA-Public Use
  Company Number: US-ROCHE-1337837

PATIENT
  Age: 84 Year
  Sex: Female
  Weight: 77.63 kg

DRUGS (6)
  1. RITUXIMAB [Suspect]
     Indication: PRODUCT USED FOR UNKNOWN INDICATION
     Route: 065
  2. CARDURA [Concomitant]
     Indication: HYPERTENSION
     Route: 048
  3. COUMADIN [Concomitant]
     Indication: DEEP VEIN THROMBOSIS
     Route: 048
  4. DIOVAN [Concomitant]
     Route: 048
  5. DUONEB [Concomitant]
     Indication: CHRONIC OBSTRUCTIVE PULMONARY DISEASE
     Dosage: 0.5 3 MG
     Route: 055
  6. NORVASC [Concomitant]
     Route: 048

REACTIONS (1)
  - Cardiopulmonary failure [Fatal]
